FAERS Safety Report 6026704-5 (Version None)
Quarter: 2008Q4

REPORT INFORMATION
  Report Type: 
  Country: None (occurrence: None)
  Receive Date: 20081222
  Receipt Date: 20080925
  Transmission Date: 20090506
  Serious: No
  Sender: FDA-Public Use
  Company Number: US-WYE-H06146608

PATIENT
  Age: 43 Year
  Sex: Male
  Weight: 90.8 kg

DRUGS (3)
  1. PRISTIQ [Suspect]
     Indication: DEPRESSION
     Dosage: 50 MG 1X PER 1 DAY, ORAL
     Route: 048
     Dates: start: 20080801
  2. VALIUM [Concomitant]
  3. ZOMA (CARISOPRODOL) [Concomitant]

REACTIONS (4)
  - ABNORMAL DREAMS [None]
  - HEART RATE INCREASED [None]
  - MIDDLE INSOMNIA [None]
  - PANIC ATTACK [None]
